FAERS Safety Report 24071566 (Version 1)
Quarter: 2024Q3

REPORT INFORMATION
  Report Type: Report from Study
  Country: DE (occurrence: DE)
  Receive Date: 20240710
  Receipt Date: 20240710
  Transmission Date: 20241017
  Serious: No
  Sender: ROCHE
  Company Number: DE-ROCHE-3378973

PATIENT
  Age: 28 Year
  Sex: Female
  Weight: 70.0 kg

DRUGS (5)
  1. EVRYSDI [Suspect]
     Active Substance: RISDIPLAM
     Indication: Spinal muscular atrophy
     Dosage: ON 26/APR/2023, SHE RECEIVED MOST RECENT DOSE OF RISDIPLAM, ON 06/MAR/2024, SHE RECEIVED THE MOST RE
     Route: 048
     Dates: start: 20210607
  2. ZOLPIDEM [Concomitant]
     Active Substance: ZOLPIDEM TARTRATE
     Dates: start: 20180130
  3. SERTRALINE [Concomitant]
     Active Substance: SERTRALINE HYDROCHLORIDE
     Dates: start: 202202
  4. QUETIAPINE [Concomitant]
     Active Substance: QUETIAPINE
     Dates: start: 202209
  5. PANTOPRAZOLE [Concomitant]
     Active Substance: PANTOPRAZOLE
     Dates: start: 20230419

REACTIONS (3)
  - Arthralgia [Not Recovered/Not Resolved]
  - Rash [Not Recovered/Not Resolved]
  - Influenza [Recovered/Resolved]

NARRATIVE: CASE EVENT DATE: 20221215
